FAERS Safety Report 6032618-7 (Version None)
Quarter: 2009Q1

REPORT INFORMATION
  Report Type: 
  Country: None (occurrence: None)
  Receive Date: 20090109
  Receipt Date: 20090106
  Transmission Date: 20090719
  Serious: Yes (Death)
  Sender: FDA-Public Use
  Company Number: PHEH2008US11133

PATIENT
  Sex: Female

DRUGS (8)
  1. SANDOSTATIN LAR [Suspect]
     Indication: CARCINOID SYNDROME
     Dosage: 20 MG, UNK
     Route: 030
     Dates: start: 20081014
  2. SANDOSTATIN LAR [Suspect]
     Indication: DIARRHOEA
  3. SANDOSTATIN [Suspect]
     Indication: CARCINOID SYNDROME
     Route: 030
  4. SANDOSTATIN [Suspect]
     Indication: DIARRHOEA
  5. KLONOPIN [Concomitant]
     Indication: ANXIETY
     Route: 048
  6. TOPROL-XL [Concomitant]
     Route: 048
  7. TAMOXIFEN CITRATE [Concomitant]
     Indication: OSTEOPOROSIS
     Route: 048
  8. LOMOTIL [Concomitant]
     Indication: DIARRHOEA
     Route: 048

REACTIONS (4)
  - COLONIC OBSTRUCTION [None]
  - ENDOMETRIAL CANCER METASTATIC [None]
  - INFECTION [None]
  - INTESTINAL RESECTION [None]
